FAERS Safety Report 6140485-6 (Version None)
Quarter: 2009Q1

REPORT INFORMATION
  Report Type: 
  Country: None (occurrence: None)
  Receive Date: 20090331
  Receipt Date: 20090319
  Transmission Date: 20090719
  Serious: Yes (Hospitalization, Disabling)
  Sender: FDA-Public Use
  Company Number: 2008-04710

PATIENT
  Age: 80 Year
  Sex: Male
  Weight: 61.7 kg

DRUGS (12)
  1. VELCADE [Suspect]
     Indication: MULTIPLE MYELOMA
     Dosage: 1.3 MG/M2, INTRAVENOUS
     Route: 042
     Dates: start: 20081114, end: 20081212
  2. MELPHALAN (MELPHALAN) VIAL [Suspect]
     Indication: MULTIPLE MYELOMA
     Dosage: 14 MG, ORAL
     Route: 048
     Dates: start: 20081114, end: 20081117
  3. PREDNISONE [Suspect]
     Indication: MULTIPLE MYELOMA
     Dosage: 95 MG, ORAL
     Route: 048
     Dates: start: 20081114, end: 20081117
  4. OXYCODONE HCL [Concomitant]
  5. PERCOCET (PARACETAMOL, OXYCODONE HDYROCHLORIDE) [Concomitant]
  6. LIPITOR [Concomitant]
  7. DIOVAN [Concomitant]
  8. ASPIRIN [Concomitant]
  9. LACTULOSE [Concomitant]
  10. ZOFRAN [Concomitant]
  11. COMPAZINE (PROCHLORPERAZIINE EDISYLATE) [Concomitant]
  12. VALTREX [Concomitant]

REACTIONS (12)
  - AORTIC VALVE INCOMPETENCE [None]
  - BLOOD CALCIUM DECREASED [None]
  - BLOOD SODIUM DECREASED [None]
  - CARDIAC FAILURE CONGESTIVE [None]
  - HAEMOGLOBIN DECREASED [None]
  - HYPOTENSION [None]
  - LEFT VENTRICULAR DYSFUNCTION [None]
  - MUSCULAR WEAKNESS [None]
  - MUSCULOSKELETAL PAIN [None]
  - NEUROPATHY PERIPHERAL [None]
  - PLATELET COUNT DECREASED [None]
  - PULMONARY OEDEMA [None]
